FAERS Safety Report 8170351-6 (Version None)
Quarter: 2012Q1

REPORT INFORMATION
  Report Type: 
  Country: None (occurrence: None)
  Receive Date: 20120228
  Receipt Date: 20120123
  Transmission Date: 20120608
  Serious: Yes (Hospitalization)
  Sender: FDA-Public Use
  Company Number: US-UCBSA-050433

PATIENT
  Age: 52 Year
  Sex: Female
  Weight: 68 kg

DRUGS (6)
  1. CARBATROL [Concomitant]
     Dosage: 200 MG QD + 300 MG QD
     Dates: start: 20120111, end: 20120119
  2. LACOSAMIDE [Suspect]
     Indication: EPILEPSY
     Route: 048
     Dates: start: 20111219
  3. CARBATROL [Concomitant]
     Indication: EPILEPSY
     Dates: start: 20090101, end: 20120110
  4. CARBATROL [Concomitant]
     Dates: start: 20120120, end: 20120120
  5. CELEXA [Concomitant]
     Indication: ANXIETY
     Dates: start: 20101022
  6. CARBATROL [Concomitant]
     Dates: start: 20120121

REACTIONS (5)
  - FEAR [None]
  - ANXIETY [None]
  - ATAXIA [None]
  - MUSCLE TWITCHING [None]
  - CONVULSION [None]
